FAERS Safety Report 12799959 (Version 1)
Quarter: 2016Q3

REPORT INFORMATION
  Report Type: Spontaneous
  Country: IN (occurrence: IN)
  Receive Date: 20160930
  Receipt Date: 20160930
  Transmission Date: 20161109
  Serious: Yes (Death, Hospitalization)
  Sender: FDA-Public Use
  Company Number: IN-FRESENIUS KABI-FK201607225

PATIENT
  Age: 32 Year
  Sex: Female

DRUGS (3)
  1. RIFAMPIN (MANUFACTURER UNKNOWN) [Suspect]
     Active Substance: RIFAMPIN
     Indication: MASTITIS
     Route: 065
  2. ISONIAZID. [Suspect]
     Active Substance: ISONIAZID
     Indication: MASTITIS
     Route: 065
  3. RIFAMPIN (MANUFACTURER UNKNOWN) [Suspect]
     Active Substance: RIFAMPIN
     Route: 065

REACTIONS (4)
  - Pneumonia bacterial [Fatal]
  - Acute respiratory distress syndrome [Recovered/Resolved]
  - Sepsis [Fatal]
  - Anaphylactic reaction [Not Recovered/Not Resolved]
